FAERS Safety Report 17281971 (Version 1)
Quarter: 2020Q1

REPORT INFORMATION
  Report Type: Spontaneous
  Country: US (occurrence: US)
  Receive Date: 20191230
  Receipt Date: 20191230
  Transmission Date: 20200409
  Serious: No
  Sender: FDA-Public Use
  Company Number: None

PATIENT
  Sex: Female

DRUGS (2)
  1. MAVYRET [Suspect]
     Active Substance: GLECAPREVIR\PIBRENTASVIR
     Indication: HEPATITIS VIRAL
     Dosage: ?          OTHER DOSE:100MG/40MG;OTHER FREQUENCY:3 TABS ONCE DAILY;?
     Route: 048
     Dates: start: 20191203
  2. MAVYRET [Suspect]
     Active Substance: GLECAPREVIR\PIBRENTASVIR
     Indication: HEPATITIS C
     Dosage: ?          OTHER DOSE:100MG/40MG;OTHER FREQUENCY:3 TABS ONCE DAILY;?
     Route: 048
     Dates: start: 20191203

REACTIONS (2)
  - Unevaluable event [None]
  - Depression [None]
